FAERS Safety Report 23897696 (Version 1)
Quarter: 2024Q2

REPORT INFORMATION
  Report Type: Spontaneous
  Country: US (occurrence: US)
  Receive Date: 20240524
  Receipt Date: 20240524
  Transmission Date: 20240716
  Serious: No
  Sender: FDA-Public Use
  Company Number: US-BIOCON BIOLOGICS LIMITED-BBL2024000677

PATIENT

DRUGS (1)
  1. SEMGLEE (INSULIN GLARGINE-YFGN) [Suspect]
     Active Substance: INSULIN GLARGINE-YFGN
     Indication: Type 2 diabetes mellitus
     Dosage: 137 INTERNATIONAL UNIT PER MILLILITRE,TWICE A DAY
     Route: 065

REACTIONS (3)
  - Device defective [Unknown]
  - Device mechanical issue [Unknown]
  - Drug delivery system issue [Unknown]
